FAERS Safety Report 8408096-7 (Version None)
Quarter: 2012Q2

REPORT INFORMATION
  Report Type: 
  Country: None (occurrence: None)
  Receive Date: 20120604
  Receipt Date: 20120528
  Transmission Date: 20120825
  Serious: Yes (Hospitalization, Other)
  Sender: FDA-Public Use
  Company Number: US-TEVA-340396USA

PATIENT
  Age: 30 Year
  Sex: Female

DRUGS (3)
  1. AMITRIPTYLINE HCL [Suspect]
  2. CYCLOBENZAPRINE [Suspect]
  3. GLYCINE MAX SEED OIL [Suspect]
     Indication: CIRCULATORY COLLAPSE
     Dosage: 20% (20 G/DL) CONCENTRATION OF LIPID EMULSION; BOLUS (X3)
     Route: 040

REACTIONS (6)
  - DEEP VEIN THROMBOSIS [None]
  - ASPIRATION [None]
  - CIRCULATORY COLLAPSE [None]
  - SHOCK [None]
  - CARDIAC ARREST [None]
  - AMNESIA [None]
